FAERS Safety Report 9165245 (Version 2)
Quarter: 2013Q1

REPORT INFORMATION
  Report Type: Other
  Country: US (occurrence: US)
  Receive Date: 20130315
  Receipt Date: 20130326
  Transmission Date: 20140127
  Serious: Yes (Other)
  Sender: FDA-Public Use
  Company Number: US-SHIRE-ALL1-2013-01351

PATIENT
  Sex: Female

DRUGS (1)
  1. VPRIV [Suspect]
     Indication: GAUCHER^S DISEASE
     Dosage: 4000 IU, 1X/2WKS
     Route: 041
     Dates: start: 20100621

REACTIONS (4)
  - Osteonecrosis [Not Recovered/Not Resolved]
  - Pain in extremity [Not Recovered/Not Resolved]
  - Sinusitis [Unknown]
  - Rash [Unknown]
